FAERS Safety Report 6216859-1 (Version None)
Quarter: 2009Q2

REPORT INFORMATION
  Report Type: 
  Country: None (occurrence: None)
  Receive Date: 20090603
  Receipt Date: 20090603
  Transmission Date: 20091009
  Serious: No
  Sender: FDA-Public Use
  Company Number: None

PATIENT
  Sex: Female
  Weight: 54.4316 kg

DRUGS (1)
  1. ACTONEL [Suspect]
     Dosage: 1 MONTHLY
     Dates: start: 20090406, end: 20090504

REACTIONS (3)
  - ARTHRALGIA [None]
  - BONE PAIN [None]
  - NAUSEA [None]
